FAERS Safety Report 23815105 (Version 6)
Quarter: 2024Q2

REPORT INFORMATION
  Report Type: Report from Study
  Country: US (occurrence: US)
  Receive Date: 20240503
  Receipt Date: 20240620
  Transmission Date: 20240716
  Serious: Yes (Hospitalization)
  Sender: FDA-Public Use
  Company Number: US-BRISTOL-MYERS SQUIBB COMPANY-2024-041274

PATIENT
  Age: 65 Year
  Sex: Male
  Weight: 79.37 kg

DRUGS (30)
  1. VYNDAMAX [Suspect]
     Active Substance: TAFAMIDIS
     Indication: Blood disorder
     Dosage: 61 MG, DAILY
     Route: 048
  2. VYNDAMAX [Suspect]
     Active Substance: TAFAMIDIS
     Dosage: 61 MG, DAILY
  3. VYNDAMAX [Suspect]
     Active Substance: TAFAMIDIS
     Dosage: 61 MG, 1X/DAY
     Route: 048
  4. ELIQUIS [Suspect]
     Active Substance: APIXABAN
     Indication: Thrombosis
     Dosage: 5 MG, 2X/DAY
  5. MINOXIDIL [Suspect]
     Active Substance: MINOXIDIL
     Indication: Blood pressure abnormal
     Dosage: 10 MG, 1X/DAY
  6. SPIRONOLACTONE [Suspect]
     Active Substance: SPIRONOLACTONE
     Dosage: 25 MG, DAILY
  7. POTASSIUM [Suspect]
     Active Substance: POTASSIUM
     Indication: Blood potassium increased
     Dosage: 20 MEQ (PAC), 1X/DAY
  8. ASPIRIN [Suspect]
     Active Substance: ASPIRIN
     Indication: Thrombosis
     Dosage: 81 MG, DAILY
  9. ATENOLOL [Suspect]
     Active Substance: ATENOLOL
     Indication: Blood pressure measurement
     Dosage: 50 MG, DAILY
  10. ATENOLOL [Suspect]
     Active Substance: ATENOLOL
     Dosage: 100 MG, 1X/DAY
  11. BIOFREEZE [Suspect]
     Active Substance: MENTHOL
     Indication: Back pain
     Dosage: UNK, DAILY (AER)
  12. BIOFREEZE [Suspect]
     Active Substance: MENTHOL
     Indication: Pain in extremity
  13. BUMETANIDE [Suspect]
     Active Substance: BUMETANIDE
     Indication: Fluid imbalance
     Dosage: 1 MG 2 (DAILY)
     Dates: start: 2023
  14. COLCHICINE [Suspect]
     Active Substance: COLCHICINE
     Indication: Cardiac disorder
     Dosage: 2 DAILY 0.6 MG
     Dates: start: 2023
  15. ENTRESTO [Suspect]
     Active Substance: SACUBITRIL\VALSARTAN
     Dosage: (97 MG) 103 MG 1 DAILY
  16. ENTRESTO [Suspect]
     Active Substance: SACUBITRIL\VALSARTAN
     Dosage: (SACUBITRIL 97 MG / VALSARTAN 103 MG) 2 DAILY
  17. FLUTICASONE [Suspect]
     Active Substance: FLUTICASONE
     Indication: Fluid imbalance
     Dosage: 200 - 625 25 MCG, DAILY.
  18. FLUTICASONE [Suspect]
     Active Substance: FLUTICASONE
     Dosage: SUS 50MCG/AC
  19. JARDIANCE [Suspect]
     Active Substance: EMPAGLIFLOZIN
     Dosage: 25 MG, DAILY
  20. LINZESS [Suspect]
     Active Substance: LINACLOTIDE
     Indication: Bowel movement irregularity
     Dosage: 145 UG, 1X/DAY
  21. MUCINEX DM [Suspect]
     Active Substance: DEXTROMETHORPHAN HYDROBROMIDE\GUAIFENESIN
     Dosage: UNK
  22. PRAVASTATIN [Suspect]
     Active Substance: PRAVASTATIN
     Dosage: 40 MG, 1X/DAY
  23. TAMSULOSIN [Suspect]
     Active Substance: TAMSULOSIN
     Indication: Prostatic disorder
     Dosage: 0.4 MG, 1X/DAY
  24. TRELEGY ELLIPTA [Suspect]
     Active Substance: FLUTICASONE FUROATE\UMECLIDINIUM BROMIDE\VILANTEROL TRIFENATATE
     Dosage: 20 UG, DAILY (AEP 200-62.5)
  25. PANTOPRAZOLE [Concomitant]
     Active Substance: PANTOPRAZOLE
     Indication: Dyspepsia
     Dosage: 1 DAILY 40 MG
  26. IRON [Concomitant]
     Active Substance: IRON
     Dosage: 27 MG 1 DAILY
  27. RETINOL [Concomitant]
     Active Substance: RETINOL
     Indication: Cardiac disorder
     Dosage: DATE STARTED: 6 MONTHS
     Dates: start: 2023
  28. VALSARTAN [Concomitant]
     Active Substance: VALSARTAN
     Dosage: 320 MG, DAILY
  29. TRIAMTERENE [Concomitant]
     Active Substance: TRIAMTERENE
     Dosage: 37.5 25 MG DAILY
  30. AMVUTTRA [Concomitant]
     Active Substance: VUTRISIRAN
     Dosage: 25 MG (1 SHOT) EVERY 3 MONTHS

REACTIONS (3)
  - Back pain [Recovered/Resolved]
  - Somnolence [Not Recovered/Not Resolved]
  - Fatigue [Unknown]

NARRATIVE: CASE EVENT DATE: 20200101
